FAERS Safety Report 14242489 (Version 1)
Quarter: 2017Q4

REPORT INFORMATION
  Report Type: Spontaneous
  Country: BR (occurrence: BR)
  Receive Date: 20171201
  Receipt Date: 20171201
  Transmission Date: 20180321
  Serious: Yes (Other)
  Sender: FDA-Public Use
  Company Number: PHHY2017BR175067

PATIENT
  Age: 80 Year
  Sex: Male
  Weight: 60 kg

DRUGS (2)
  1. TEGRETOL [Suspect]
     Active Substance: CARBAMAZEPINE
     Indication: SPINAL SHOCK
     Dosage: 1 DF, QD
     Route: 048
     Dates: start: 20171123
  2. TEGRETOL [Suspect]
     Active Substance: CARBAMAZEPINE
     Indication: SPINAL SHOCK
     Dosage: UNK
     Route: 065

REACTIONS (3)
  - Drug dispensing error [Unknown]
  - Paralysis [Recovered/Resolved]
  - Product use in unapproved indication [Unknown]

NARRATIVE: CASE EVENT DATE: 20171123
